FAERS Safety Report 15300838 (Version 1)
Quarter: 2018Q3

REPORT INFORMATION
  Report Type: Spontaneous
  Country: US (occurrence: US)
  Receive Date: 20180821
  Receipt Date: 20180821
  Transmission Date: 20181010
  Serious: No
  Sender: FDA-Public Use
  Company Number: US-BRISTOL-MYERS SQUIBB COMPANY-BMS-2018-071422

PATIENT
  Age: 66 Year
  Sex: Male

DRUGS (1)
  1. ORENCIA [Suspect]
     Active Substance: ABATACEPT
     Indication: ARTHRITIS
     Dosage: UNK
     Route: 042
     Dates: start: 20180730

REACTIONS (5)
  - Erythema [Recovering/Resolving]
  - Product use in unapproved indication [Unknown]
  - Sunburn [Recovering/Resolving]
  - Inappropriate schedule of drug administration [Unknown]
  - Feeling hot [Recovering/Resolving]

NARRATIVE: CASE EVENT DATE: 20180730
